FAERS Safety Report 9437627 (Version 2)
Quarter: 2013Q3

REPORT INFORMATION
  Report Type: Spontaneous
  Country: ES (occurrence: ES)
  Receive Date: 20130802
  Receipt Date: 20130806
  Transmission Date: 20140515
  Serious: Yes (Other)
  Sender: FDA-Public Use
  Company Number: ES-B.I. PHARMACEUTICALS,INC./RIDGEFIELD-2013-BI-22995YA

PATIENT
  Age: 81 Year
  Sex: Male

DRUGS (3)
  1. OMNIC OCAS [Suspect]
     Indication: BENIGN PROSTATIC HYPERPLASIA
     Dosage: 0.4 MG
     Route: 048
     Dates: start: 20100901, end: 20110901
  2. ADIRO (ACETYLSALICYCLIC ACID) [Concomitant]
     Indication: CARDIAC DISORDER
     Dosage: 300 MG
     Route: 048
     Dates: start: 20100901
  3. PANTOK (SIMVASTATIN) [Concomitant]
     Indication: DYSLIPIDAEMIA
     Dosage: 20 MG
     Route: 048
     Dates: start: 20100901

REACTIONS (1)
  - Hair colour changes [Recovered/Resolved]
